FAERS Safety Report 4505285-9 (Version None)
Quarter: 2004Q4

REPORT INFORMATION
  Report Type: 
  Country: None (occurrence: None)
  Receive Date: 20041018
  Receipt Date: 20030918
  Transmission Date: 20050328
  Serious: Yes (Other)
  Sender: FDA-Public Use
  Company Number: PHEH2003US07491

PATIENT
  Age: 71 Year
  Sex: Female

DRUGS (2)
  1. MIACALCIN [Suspect]
     Indication: OSTEOPOROSIS
     Dosage: 200 IU QD, NASAL
     Route: 045
     Dates: start: 20030619, end: 20030626
  2. CALCIUM WITH VITAMIN D (CALCIUM SODIUM LACTATE) [Concomitant]

REACTIONS (3)
  - DEAFNESS UNILATERAL [None]
  - NERVE INJURY [None]
  - TINNITUS [None]
